FAERS Safety Report 6115120-3 (Version None)
Quarter: 2009Q1

REPORT INFORMATION
  Report Type: 
  Country: None (occurrence: None)
  Receive Date: 20090313
  Receipt Date: 20090304
  Transmission Date: 20090719
  Serious: Yes (Hospitalization)
  Sender: FDA-Public Use
  Company Number: IL-NOVOPROD-285025

PATIENT
  Age: 40 Year
  Sex: Female
  Weight: 53.7 kg

DRUGS (4)
  1. INSULATARD [Suspect]
     Indication: DRUG USE FOR UNKNOWN INDICATION
     Dosage: 8 IU, QD
     Route: 058
     Dates: start: 20090101
  2. ELTROXIN [Concomitant]
     Dosage: 150 MEQ, QD
     Route: 048
     Dates: start: 19980101
  3. PHENERGAN HCL [Concomitant]
     Route: 048
     Dates: start: 20090101
  4. BETAMETHASON                       /00008501/ [Concomitant]
     Dosage: 0.1%
     Route: 061

REACTIONS (3)
  - BLOOD GLUCOSE INCREASED [None]
  - RASH [None]
  - THREATENED LABOUR [None]
